FAERS Safety Report 19589085 (Version 2)
Quarter: 2021Q3

REPORT INFORMATION
  Report Type: Report from Study
  Country: US (occurrence: US)
  Receive Date: 20210721
  Receipt Date: 20210728
  Transmission Date: 20211014
  Serious: Yes (Other)
  Sender: FDA-Public Use
  Company Number: US-PFIZER INC-2020210260

PATIENT
  Age: 62 Year
  Sex: Female

DRUGS (3)
  1. LETROZOLE. [Concomitant]
     Active Substance: LETROZOLE
     Dosage: UNK UNK, DAILY
  2. IBRANCE [Suspect]
     Active Substance: PALBOCICLIB
     Dosage: 125 MG, CYCLIC (DAILY, FOR 21 DAYS AND OFF FOR 7 DAYS)
     Route: 048
     Dates: start: 20210701
  3. IBRANCE [Suspect]
     Active Substance: PALBOCICLIB
     Indication: BREAST CANCER FEMALE
     Dosage: 125 MG, CYCLIC (DAILY, FOR 21 DAYS AND OFF FOR 7 DAYS)
     Route: 048
     Dates: start: 20200521, end: 202103

REACTIONS (14)
  - Joint stiffness [Recovered/Resolved]
  - Angiopathy [Unknown]
  - Functional gastrointestinal disorder [Recovering/Resolving]
  - Mood swings [Unknown]
  - Product dose omission issue [Unknown]
  - Alopecia [Recovering/Resolving]
  - Back pain [Recovered/Resolved]
  - Headache [Recovered/Resolved]
  - Nausea [Not Recovered/Not Resolved]
  - Peripheral swelling [Recovered/Resolved]
  - Fatigue [Recovered/Resolved]
  - Vomiting [Unknown]
  - Pruritus [Unknown]
  - Neoplasm progression [Unknown]

NARRATIVE: CASE EVENT DATE: 2020
